FAERS Safety Report 8922819 (Version 1)
Quarter: 2012Q4

REPORT INFORMATION
  Report Type: 
  Country: ZA (occurrence: ZA)
  Receive Date: 20121123
  Receipt Date: 20121123
  Transmission Date: 20130627
  Serious: Yes (Other)
  Sender: FDA-Public Use
  Company Number: PHHY2012ZA106308

PATIENT
  Age: 30 Year
  Sex: Male

DRUGS (1)
  1. TEGRETOL [Suspect]

REACTIONS (2)
  - Infertility [Unknown]
  - Bipolar disorder [Unknown]
